FAERS Safety Report 6723936-5 (Version None)
Quarter: 2010Q2

REPORT INFORMATION
  Report Type: 
  Country: None (occurrence: None)
  Receive Date: 20100513
  Receipt Date: 20100423
  Transmission Date: 20101027
  Serious: Yes (Hospitalization, Other)
  Sender: FDA-Public Use
  Company Number: PHHY2010DE06771

PATIENT
  Sex: Female
  Weight: 54 kg

DRUGS (9)
  1. ALISKIREN ALI+ [Suspect]
     Dosage: UNK
  2. DIOVAN HCT [Suspect]
     Indication: HYPERTENSION
     Dosage: 160/25 MG
     Route: 048
     Dates: start: 20090116, end: 20090118
  3. DIOVAN HCT [Suspect]
     Dosage: 320/25 MG
     Route: 048
     Dates: start: 20090119
  4. INSULIN [Concomitant]
     Indication: DIABETES MELLITUS
  5. OMEP [Concomitant]
     Dosage: 1 DF/D
  6. PANGROL [Concomitant]
     Indication: ADENOCARCINOMA PANCREAS
     Dosage: 3 DF/D
  7. NORVASC [Concomitant]
     Indication: HYPERTENSION
     Dosage: 1 DF/D
  8. HUMALOG [Concomitant]
     Indication: DIABETES MELLITUS
     Dosage: UNK
  9. LANTUS [Concomitant]
     Indication: DIABETES MELLITUS
     Dosage: UNK

REACTIONS (3)
  - BLOOD GLUCOSE INCREASED [None]
  - GLYCOSYLATED HAEMOGLOBIN INCREASED [None]
  - HYPERTENSIVE CRISIS [None]
